FAERS Safety Report 9249743 (Version 3)
Quarter: 2013Q2

REPORT INFORMATION
  Report Type: Spontaneous
  Country: US (occurrence: US)
  Receive Date: 20130423
  Receipt Date: 20130607
  Transmission Date: 20140414
  Serious: Yes (Disabling, Other)
  Sender: FDA-Public Use
  Company Number: US-PFIZER INC-2013122893

PATIENT
  Age: 51 Year
  Sex: Male
  Weight: 113 kg

DRUGS (3)
  1. CELEBREX [Suspect]
     Indication: PAIN
     Dosage: 400 MG, 1X/DAY
  2. NEURONTIN [Suspect]
     Indication: PAIN
     Dosage: 600 MG, 3X/DAY
  3. EFFEXOR XR [Suspect]
     Indication: DEPRESSION
     Dosage: 75 MG, 1X/DAY

REACTIONS (3)
  - Cerebrovascular accident [Unknown]
  - Loss of consciousness [Recovering/Resolving]
  - Arthritis [Unknown]
